FAERS Safety Report 9537316 (Version 1)
Quarter: 2013Q3

REPORT INFORMATION
  Report Type: Spontaneous
  Country: JP (occurrence: JP)
  Receive Date: 20130919
  Receipt Date: 20130919
  Transmission Date: 20140515
  Serious: No
  Sender: FDA-Public Use
  Company Number: JP-PFIZER INC-2013268983

PATIENT
  Sex: Male

DRUGS (1)
  1. LYRICA [Suspect]
     Dosage: 25 MG, DAILY
     Route: 048

REACTIONS (3)
  - Tremor [Unknown]
  - Dyskinesia [Unknown]
  - Dizziness [Unknown]
